FAERS Safety Report 20709051 (Version 1)
Quarter: 2022Q2

REPORT INFORMATION
  Report Type: Spontaneous
  Country: US (occurrence: None)
  Receive Date: 20220413
  Receipt Date: 20220413
  Transmission Date: 20220721
  Serious: Yes (Disabling)
  Sender: FDA-Public Use
  Company Number: None

PATIENT
  Age: 28 Year
  Sex: Female
  Weight: 64.6 kg

DRUGS (1)
  1. BUPRENORPHINE AND NALOXONE SUBLINGUAL FILM [Suspect]
     Active Substance: BUPRENORPHINE HYDROCHLORIDE\NALOXONE HYDROCHLORIDE
     Indication: Drug dependence
     Dosage: OTHER QUANTITY : 8/2MG;?FREQUENCY : ONCE;?
     Route: 060
     Dates: start: 20220413, end: 20220413

REACTIONS (5)
  - Headache [None]
  - Nausea [None]
  - Vomiting [None]
  - Hot flush [None]
  - Hyperhidrosis [None]

NARRATIVE: CASE EVENT DATE: 20220413
